FAERS Safety Report 5598203-6 (Version None)
Quarter: 2008Q1

REPORT INFORMATION
  Report Type: 
  Country: None (occurrence: None)
  Receive Date: 20080117
  Receipt Date: 20080117
  Transmission Date: 20080703
  Serious: Yes (Hospitalization)
  Sender: FDA-Public Use
  Company Number: None

PATIENT
  Sex: Male
  Weight: 3.78 kg

DRUGS (1)
  1. MAALOX TOTAL STOMACH RELIEF   NOVARTIS [Suspect]
     Indication: VOMITING
     Dosage: 2.5 ML QID PO
     Route: 048
     Dates: start: 20080101, end: 20080110

REACTIONS (5)
  - BRONCHIOLITIS [None]
  - METABOLIC ALKALOSIS [None]
  - ORAL INTAKE REDUCED [None]
  - RESPIRATORY DISTRESS [None]
  - THERAPEUTIC AGENT TOXICITY [None]
